FAERS Safety Report 21999482 (Version 2)
Quarter: 2023Q1

REPORT INFORMATION
  Report Type: Report from Study
  Country: US (occurrence: US)
  Receive Date: 20230216
  Receipt Date: 20230221
  Transmission Date: 20230418
  Serious: No
  Sender: FDA-Public Use
  Company Number: US-002147023-NVSC2023US034992

PATIENT
  Age: 84 Year
  Sex: Female

DRUGS (1)
  1. ENTRESTO [Suspect]
     Active Substance: SACUBITRIL\VALSARTAN
     Indication: Cardiac failure
     Dosage: 1 DOSAGE FORM, QD (24/26 MG)
     Route: 048
     Dates: start: 20230214

REACTIONS (4)
  - Hypotension [Unknown]
  - Dizziness [Unknown]
  - Prescribed underdose [Unknown]
  - Off label use [Unknown]
